FAERS Safety Report 13225974 (Version 1)
Quarter: 2017Q1

REPORT INFORMATION
  Report Type: Spontaneous
  Country: US (occurrence: US)
  Receive Date: 20170213
  Receipt Date: 20170213
  Transmission Date: 20170428
  Serious: Yes (Other)
  Sender: FDA-Public Use
  Company Number: None

PATIENT
  Age: 57 Year
  Sex: Female
  Weight: 63 kg

DRUGS (3)
  1. GERITOL [Concomitant]
     Active Substance: MINERALS\VITAMINS
  2. DYSPORT [Suspect]
     Active Substance: ABOBOTULINUMTOXINA
     Indication: SKIN COSMETIC PROCEDURE
     Dosage: ?          QUANTITY:80 INJECTION(S);OTHER FREQUENCY:1 TIME ONLY;?
     Route: 058
     Dates: start: 20170124, end: 20170124
  3. MULTI-VITAMIN [Concomitant]
     Active Substance: .ALPHA.-TOCOPHEROL ACETATE, DL-\ASCORBIC ACID\CYANOCOBALAMIN\FLUORIDE ION\FOLIC ACID\NIACIN\PYRIDOXINE\RIBOFLAVIN\THIAMINE\VITAMIN A\VITAMIN D

REACTIONS (7)
  - Dysphonia [None]
  - Pneumonia [None]
  - Myalgia [None]
  - Dysphagia [None]
  - Nausea [None]
  - Migraine [None]
  - Botulism [None]

NARRATIVE: CASE EVENT DATE: 20170126
